FAERS Safety Report 7277386-6 (Version None)
Quarter: 2011Q1

REPORT INFORMATION
  Report Type: 
  Country: None (occurrence: None)
  Receive Date: 20110207
  Receipt Date: 20110128
  Transmission Date: 20110831
  Serious: Yes (Hospitalization)
  Sender: FDA-Public Use
  Company Number: US-US-EMD SERONO, INC.-7037090

PATIENT
  Sex: Female

DRUGS (10)
  1. VITAMIN D [Concomitant]
  2. CARAFATE [Concomitant]
  3. REBIF [Suspect]
     Indication: MULTIPLE SCLEROSIS
     Route: 058
     Dates: end: 20100902
  4. MULTI-VITAMIN [Concomitant]
  5. GABAPENTIN [Concomitant]
  6. MAXALT [Concomitant]
  7. TRI-SPRINTEC [Concomitant]
  8. REBIF [Suspect]
     Route: 058
  9. DICLOFENAC [Suspect]
  10. PROTONIX [Concomitant]

REACTIONS (5)
  - MULTIPLE SCLEROSIS RELAPSE [None]
  - WEIGHT DECREASED [None]
  - INFLUENZA LIKE ILLNESS [None]
  - HIATUS HERNIA [None]
  - GASTRITIS [None]
